FAERS Safety Report 24983447 (Version 1)
Quarter: 2025Q1

REPORT INFORMATION
  Report Type: Report from Study
  Country: US (occurrence: US)
  Receive Date: 20250219
  Receipt Date: 20250219
  Transmission Date: 20250409
  Serious: Yes (Other)
  Sender: TAKEDA
  Company Number: US-TAKEDA-2024TUS129967

PATIENT
  Sex: Female

DRUGS (16)
  1. IXAZOMIB [Suspect]
     Active Substance: IXAZOMIB
     Indication: Plasma cell myeloma
     Dates: start: 20241223, end: 20250211
  2. ACYCLOVIR [Concomitant]
     Active Substance: ACYCLOVIR
  3. ATORVASTATIN [Concomitant]
     Active Substance: ATORVASTATIN
  4. BUMETANIDE [Concomitant]
     Active Substance: BUMETANIDE
  5. DEXAMETHASONE [Concomitant]
     Active Substance: DEXAMETHASONE
  6. DRAMAMINE [Concomitant]
     Active Substance: DIMENHYDRINATE
  7. FAMOTIDINE [Concomitant]
     Active Substance: FAMOTIDINE
  8. LEVOCETIRIZINE DIHYDROCHLORIDE [Concomitant]
     Active Substance: LEVOCETIRIZINE DIHYDROCHLORIDE
  9. LEVOTHYROXINE [Concomitant]
     Active Substance: LEVOTHYROXINE
  10. LOSARTAN [Concomitant]
     Active Substance: LOSARTAN
  11. MECLIZINE [Concomitant]
     Active Substance: MECLIZINE HYDROCHLORIDE
  12. NEBIVOLOL [Concomitant]
     Active Substance: NEBIVOLOL
  13. VITAMIN D3 [Concomitant]
     Active Substance: CHOLECALCIFEROL
  14. VITAMIN B12 [Concomitant]
     Active Substance: CYANOCOBALAMIN
  15. TUMS [Concomitant]
     Active Substance: CALCIUM CARBONATE
  16. VITAMIN A [Concomitant]
     Active Substance: VITAMIN A

REACTIONS (4)
  - Plasma cell myeloma [Not Recovered/Not Resolved]
  - Sinusitis [Unknown]
  - Somnolence [Unknown]
  - Drug ineffective [Unknown]
